FAERS Safety Report 8014136-X (Version None)
Quarter: 2011Q4

REPORT INFORMATION
  Report Type: 
  Country: None (occurrence: None)
  Receive Date: 20111229
  Receipt Date: 20111222
  Transmission Date: 20120403
  Serious: Yes (Hospitalization, Other)
  Sender: FDA-Public Use
  Company Number: US-BAYER-2011-105100

PATIENT
  Age: 48 Year
  Sex: Male

DRUGS (5)
  1. NEXAVAR [Suspect]
     Indication: HEPATIC NEOPLASM MALIGNANT
     Dosage: 200 MG, BID
     Route: 048
     Dates: start: 20111007, end: 20111125
  2. NEXAVAR [Suspect]
     Dosage: 200 MG, BID
     Route: 048
     Dates: end: 20111213
  3. NEXAVAR [Suspect]
     Dosage: 200 MG, BID
     Route: 048
     Dates: start: 20111219
  4. NEXIUM [Concomitant]
     Indication: GASTROOESOPHAGEAL REFLUX DISEASE
  5. NEXAVAR [Suspect]
     Dosage: 400 MG, BID
     Route: 048
     Dates: start: 20111201

REACTIONS (9)
  - DEPRESSION [None]
  - NAUSEA [None]
  - BLOOD POTASSIUM DECREASED [None]
  - DIARRHOEA [None]
  - AMMONIA INCREASED [None]
  - ASTHENIA [None]
  - HAEMOPTYSIS [None]
  - ABDOMINAL PAIN UPPER [None]
  - SKIN EXFOLIATION [None]
